FAERS Safety Report 4430773-3 (Version None)
Quarter: 2004Q3

REPORT INFORMATION
  Report Type: 
  Country: None (occurrence: None)
  Receive Date: 20040818
  Receipt Date: 20040803
  Transmission Date: 20050211
  Serious: Yes (Death)
  Sender: FDA-Public Use
  Company Number: 207444

PATIENT
  Age: 17 Year
  Sex: Male

DRUGS (9)
  1. MABTHERA (RITUXIMAB) CONC  FOR SOLUTION FOR INFUSION [Suspect]
     Indication: SYSTEMIC LUPUS ERYTHEMATOSUS
     Dosage: SUBCUTANEOUS
     Route: 058
     Dates: start: 20040501, end: 20040508
  2. HYPERAMINE 30 (AMINO ACIDS) [Suspect]
     Dosage: SEE IMAGE
     Route: 042
     Dates: start: 20040410, end: 20040415
  3. HYPERAMINE 30 (AMINO ACIDS) [Suspect]
     Dosage: SEE IMAGE
     Route: 042
     Dates: start: 20040508
  4. NOVOSEVEN [Suspect]
     Dosage: SUBCUTANEOUS
     Route: 058
     Dates: start: 20040419, end: 20040508
  5. FLUCONAZOLE [Suspect]
     Dates: start: 20040428, end: 20040508
  6. TAZOCLILLINE (PIPERACILLIN SODIUM, TAZOBACTAM) [Suspect]
     Dates: start: 20040428, end: 20040508
  7. BUMETANIDE [Suspect]
     Dates: start: 20040415, end: 20040508
  8. TARGOCID [Concomitant]
  9. SOLU-MEDROL [Concomitant]

REACTIONS (5)
  - COMA [None]
  - DEPRESSED LEVEL OF CONSCIOUSNESS [None]
  - DIALYSIS [None]
  - ENCEPHALOPATHY [None]
  - HYPERAMMONAEMIA [None]
